FAERS Safety Report 8849309 (Version 2)
Quarter: 2019Q4

REPORT INFORMATION
  Report Type: Spontaneous
  Country: US (occurrence: US)
  Receive Date: 20121017
  Receipt Date: 20191219
  Transmission Date: 20200122
  Serious: Yes (Hospitalization)
  Sender: FDA-Public Use
  Company Number: US-UCBSA-068629

PATIENT
  Sex: Male

DRUGS (13)
  1. PHENERGAN [Concomitant]
     Active Substance: PROMETHAZINE HYDROCHLORIDE
     Dosage: 25 MG, AS NEEDED (PRN)
  2. CEPHAXALIN [Concomitant]
     Dosage: 500 MG, 2X/DAY (BID)
  3. ASPIRIN. [Concomitant]
     Active Substance: ASPIRIN
  4. CIMZIA [Suspect]
     Active Substance: CERTOLIZUMAB PEGOL
     Indication: CROHN^S DISEASE
     Dosage: 200 MG, EV 2 WEEKS(QOW)
  5. CIMZIA [Suspect]
     Active Substance: CERTOLIZUMAB PEGOL
     Indication: CROHN^S DISEASE
  6. HYDROCODONE [Concomitant]
     Active Substance: HYDROCODONE
     Dosage: UNK UNK, AS NEEDED (PRN)
  7. METRONIDAZOLE. [Concomitant]
     Active Substance: METRONIDAZOLE
     Dosage: 500 MG
  8. WALLITIN [Concomitant]
  9. TRAMADOL. [Concomitant]
     Active Substance: TRAMADOL
     Dosage: 50 MG, AS NEEDED (PRN)
  10. CENTRUM MVI [Concomitant]
  11. PRECHLORPERAZINE [Concomitant]
     Dosage: 10 MG, AS NEEDED (PRN)
  12. TUMS [Concomitant]
     Active Substance: CALCIUM CARBONATE
  13. VITAMIN K [Concomitant]
     Active Substance: PHYTONADIONE

REACTIONS (1)
  - Furuncle [Unknown]
